FAERS Safety Report 8777838 (Version 1)
Quarter: 2012Q4

REPORT INFORMATION
  Report Type: 
  Country: US (occurrence: US)
  Receive Date: 20120912
  Receipt Date: 20120912
  Transmission Date: 20130627
  Serious: No
  Sender: FDA-Public Use
  Company Number: US-VERTEX PHARMACEUTICAL INC.-AE-2012-004340

PATIENT
  Age: 29 Year
  Sex: Female

DRUGS (3)
  1. INCIVEK [Suspect]
     Indication: HEPATITIS C
     Route: 048
     Dates: start: 20120224, end: 20120517
  2. RIBASPHERE [Concomitant]
     Indication: HEPATITIS C
     Route: 048
     Dates: start: 20120224
  3. PEGASYS [Concomitant]
     Indication: HEPATITIS C
     Route: 058
     Dates: start: 20120224

REACTIONS (16)
  - White blood cell count decreased [Not Recovered/Not Resolved]
  - Dizziness [Not Recovered/Not Resolved]
  - Alopecia [Not Recovered/Not Resolved]
  - Pyrexia [Not Recovered/Not Resolved]
  - Dry eye [Not Recovered/Not Resolved]
  - Dry skin [Not Recovered/Not Resolved]
  - Hair texture abnormal [Not Recovered/Not Resolved]
  - Mood swings [Not Recovered/Not Resolved]
  - Fatigue [Not Recovered/Not Resolved]
  - Asthenia [Not Recovered/Not Resolved]
  - Anaemia [Not Recovered/Not Resolved]
  - Skin exfoliation [Not Recovered/Not Resolved]
  - Rash papular [Not Recovered/Not Resolved]
  - Diarrhoea [Not Recovered/Not Resolved]
  - Nausea [Not Recovered/Not Resolved]
  - Pruritus [Unknown]
